FAERS Safety Report 18752800 (Version 2)
Quarter: 2021Q1

REPORT INFORMATION
  Report Type: Spontaneous
  Country: IT (occurrence: IT)
  Receive Date: 20210118
  Receipt Date: 20210209
  Transmission Date: 20210419
  Serious: Yes (Other)
  Sender: FDA-Public Use
  Company Number: IT-AMGEN-ITASP2021003746

PATIENT

DRUGS (8)
  1. EVOLOCUMAB [Suspect]
     Active Substance: EVOLOCUMAB
     Indication: PRIMARY HYPERCHOLESTEROLAEMIA
     Dosage: UNK
     Route: 058
  2. FLUVASTATIN [Concomitant]
     Active Substance: FLUVASTATIN SODIUM
     Dosage: ANY DOSAGE
  3. SIMVASTATIN. [Concomitant]
     Active Substance: SIMVASTATIN
     Dosage: ANY DOSAGE
  4. EZETIMIBE. [Concomitant]
     Active Substance: EZETIMIBE
  5. ATORVASTATIN [Concomitant]
     Active Substance: ATORVASTATIN
  6. ROSUVASTATIN. [Concomitant]
     Active Substance: ROSUVASTATIN
  7. LOVASTATIN. [Concomitant]
     Active Substance: LOVASTATIN
     Dosage: ANY DOSAGE
  8. PRAVASTATIN. [Concomitant]
     Active Substance: PRAVASTATIN
     Dosage: ANY DOSAGE

REACTIONS (11)
  - Myocardial infarction [Unknown]
  - Alanine aminotransferase increased [Unknown]
  - Blood creatine phosphokinase decreased [Unknown]
  - Upper respiratory tract infection [Unknown]
  - Percutaneous coronary intervention [Unknown]
  - Influenza like illness [Unknown]
  - Urticaria [Unknown]
  - Renal failure [Unknown]
  - Cerebrovascular accident [Unknown]
  - Aspartate aminotransferase increased [Unknown]
  - Muscle disorder [Unknown]
